FAERS Safety Report 9222638 (Version 1)
Quarter: 2013Q1

REPORT INFORMATION
  Report Type: Spontaneous
  Country: US (occurrence: None)
  Receive Date: 20120914
  Receipt Date: 20120914
  Transmission Date: 20140127
  Serious: Yes (Other)
  Sender: FDA-Public Use
  Company Number: JPI-P-021652

PATIENT
  Age: 54 Year
  Sex: Female
  Weight: 104.33 kg

DRUGS (8)
  1. XYREM (500, MILLIGRAM/MILLILITERS, SOLUTION) (SODIUM OXYBATE) [Suspect]
     Indication: NARCOLEPSY
     Dosage: 3 GM 2 IN 1 D
     Route: 048
     Dates: start: 200908
  2. INSULIN [Concomitant]
  3. PRAMIPEXOLE DIHYDROCHLORIDE [Concomitant]
  4. DILTIAZEM HYDROCHLORIDE [Concomitant]
  5. METFORMIN [Concomitant]
  6. IRBESRTAN [Concomitant]
  7. EZETIMIBBE; SIMVASTATIN [Concomitant]
  8. MONTELUKAST SODIUM [Concomitant]

REACTIONS (3)
  - Breathing-related sleep disorder [None]
  - Oxygen saturation decreased [None]
  - Hypoxia [None]
